FAERS Safety Report 5972169-9 (Version None)
Quarter: 2008Q4

REPORT INFORMATION
  Report Type: 
  Country: None (occurrence: None)
  Receive Date: 20081201
  Receipt Date: 20071003
  Transmission Date: 20090506
  Serious: No
  Sender: FDA-Public Use
  Company Number: US-TEVA-162308USA

PATIENT
  Sex: Male
  Weight: 36.32 kg

DRUGS (1)
  1. SALBUTAMOL SULFATE INHALATION, 0.09 MG [Suspect]
     Dosage: 2 PUFFS
     Route: 055
     Dates: start: 20071002

REACTIONS (2)
  - ABDOMINAL PAIN UPPER [None]
  - DYSGEUSIA [None]
